FAERS Safety Report 7467272-0 (Version None)
Quarter: 2011Q2

REPORT INFORMATION
  Report Type: 
  Country: None (occurrence: None)
  Receive Date: 20110509
  Receipt Date: 20101129
  Transmission Date: 20111010
  Serious: Yes (Hospitalization)
  Sender: FDA-Public Use
  Company Number: US-ALEXION-A201001529

PATIENT
  Sex: Female

DRUGS (1)
  1. SOLIRIS [Suspect]
     Indication: PAROXYSMAL NOCTURNAL HAEMOGLOBINURIA
     Dosage: UNK
     Route: 042

REACTIONS (6)
  - CARDIAC FAILURE CONGESTIVE [None]
  - MIGRAINE [None]
  - RENAL DISORDER [None]
  - BACK PAIN [None]
  - BLOOD COUNT ABNORMAL [None]
  - VOMITING [None]
